FAERS Safety Report 5928303-X (Version None)
Quarter: 2008Q4

REPORT INFORMATION
  Report Type: 
  Country: None (occurrence: None)
  Receive Date: 20081022
  Receipt Date: 20081022
  Transmission Date: 20090506
  Serious: Yes (Other)
  Sender: FDA-Public Use
  Company Number: None

PATIENT
  Sex: Female

DRUGS (1)
  1. IRON DEXTRAN [Suspect]
     Dates: start: 20080912, end: 20080912

REACTIONS (6)
  - DYSPHAGIA [None]
  - NASAL CONGESTION [None]
  - ORAL PRURITUS [None]
  - PRURITUS [None]
  - RHINORRHOEA [None]
  - SNEEZING [None]
